FAERS Safety Report 4854874-0 (Version None)
Quarter: 2005Q4

REPORT INFORMATION
  Report Type: 
  Country: None (occurrence: None)
  Receive Date: 20051213
  Receipt Date: 20051128
  Transmission Date: 20060501
  Serious: Yes (Hospitalization, Disabling, Other)
  Sender: FDA-Public Use
  Company Number: 2005-0008669

PATIENT
  Age: 42 Year
  Sex: Male
  Weight: 75 kg

DRUGS (6)
  1. VIREAD [Suspect]
     Indication: HIV INFECTION
     Dosage: 300 MG, 1 IN 2 D, ORAL
     Route: 048
     Dates: start: 20050505, end: 20050507
  2. KALETRA [Suspect]
     Indication: HIV INFECTION
     Dosage: 2 IN 1 D, ORAL
     Route: 048
     Dates: start: 20050412, end: 20050507
  3. LAMIVUDINE [Concomitant]
  4. CENTRUM FORTE (CENTRUM /01536001/) [Concomitant]
  5. HYDRASENSE (SEA WATER) [Concomitant]
  6. NASOCORT AQ (BUDESONIDE) [Concomitant]

REACTIONS (9)
  - BLOOD ALBUMIN DECREASED [None]
  - BLOOD CREATINE PHOSPHOKINASE INCREASED [None]
  - CELLULITIS [None]
  - DYSPNOEA [None]
  - HEPATIC CIRRHOSIS [None]
  - NEPHROTIC SYNDROME [None]
  - OEDEMA PERIPHERAL [None]
  - RENAL FAILURE ACUTE [None]
  - SPLENOMEGALY [None]
